FAERS Safety Report 19218018 (Version 4)
Quarter: 2021Q3

REPORT INFORMATION
  Report Type: Report from Study
  Country: US (occurrence: US)
  Receive Date: 20210505
  Receipt Date: 20210805
  Transmission Date: 20211014
  Serious: Yes (Hospitalization)
  Sender: FDA-Public Use
  Company Number: US-CELGENEUS-USA-20210407278

PATIENT
  Age: 66 Year
  Sex: Female
  Weight: 56.3 kg

DRUGS (69)
  1. BB2121 [Suspect]
     Active Substance: INVESTIGATIONAL PRODUCT
     Indication: PLASMA CELL MYELOMA
     Dosage: 450 X 10^6 CAR + T CELLS
     Route: 041
     Dates: start: 20210322, end: 20210322
  2. ACYCLOVIR. [Concomitant]
     Active Substance: ACYCLOVIR
     Indication: INFECTION PROPHYLAXIS
     Dosage: 800 MILLIGRAM
     Route: 048
     Dates: start: 2016
  3. CYCLOBENZAPRINE. [Concomitant]
     Active Substance: CYCLOBENZAPRINE
     Indication: MUSCLE SPASMS
     Route: 048
     Dates: start: 2016
  4. POTASSIUM CHLORIDE. [Concomitant]
     Active Substance: POTASSIUM CHLORIDE
     Indication: HYPOKALAEMIA
     Route: 041
     Dates: start: 20210324, end: 20210327
  5. ONDANSETRON [Concomitant]
     Active Substance: ONDANSETRON
     Indication: NAUSEA
     Route: 048
     Dates: start: 20210312
  6. ONDANSETRON [Concomitant]
     Active Substance: ONDANSETRON
     Dosage: 24 MILLIGRAM
     Route: 041
     Dates: start: 20210325, end: 20210329
  7. ZINC SULFATE. [Concomitant]
     Active Substance: ZINC SULFATE
     Indication: SUPPLEMENTATION THERAPY
     Dosage: 220 MILLIGRAM
     Route: 048
     Dates: start: 20210322, end: 20210405
  8. MAGNESIUM OXIDE. [Concomitant]
     Active Substance: MAGNESIUM OXIDE
     Indication: PRODUCT USED FOR UNKNOWN INDICATION
     Dosage: 400 MILLIGRAM
     Route: 048
     Dates: start: 20210322, end: 20210404
  9. VANCOMYCIN [Concomitant]
     Active Substance: VANCOMYCIN
     Indication: PYREXIA
     Dosage: 1250 MILLIGRAM
     Route: 041
     Dates: start: 20210323, end: 20210323
  10. LEVETIRACETAM. [Concomitant]
     Active Substance: LEVETIRACETAM
     Indication: SEIZURE PROPHYLAXIS
     Dosage: 1500 MILLIGRAM
     Route: 048
     Dates: start: 20210323, end: 20210324
  11. AZTREONAM. [Concomitant]
     Active Substance: AZTREONAM
     Indication: PYREXIA
     Dosage: 6 GRAM
     Route: 041
     Dates: start: 20210323, end: 20210328
  12. MELATONIN [Concomitant]
     Active Substance: MELATONIN
     Indication: INSOMNIA
     Route: 048
     Dates: start: 20210326, end: 20210403
  13. LORAZEPAM. [Concomitant]
     Active Substance: LORAZEPAM
     Indication: ANXIETY
  14. POTASSIUM PHOSPHATE [Concomitant]
     Active Substance: POTASSIUM PHOSPHATE
     Indication: HYPOKALAEMIA
     Route: 041
     Dates: start: 20210324, end: 20210326
  15. ACETYLCYSTEINE. [Concomitant]
     Active Substance: ACETYLCYSTEINE
     Indication: HYPOXIA
  16. FUROSEMIDE. [Concomitant]
     Active Substance: FUROSEMIDE
     Route: 041
     Dates: start: 20210330, end: 20210330
  17. FILGRASTIM?SNDZ [Concomitant]
     Active Substance: FILGRASTIM-SNDZ
     Indication: NEUTROPENIA
     Route: 058
     Dates: start: 20210405, end: 20210405
  18. PAROXETINE. [Concomitant]
     Active Substance: PAROXETINE
     Indication: DEPRESSION
     Dosage: 40 MILLIGRAM
     Route: 048
     Dates: start: 202007
  19. PENTAMIDINE [Concomitant]
     Active Substance: PENTAMIDINE
     Indication: ANTIFUNGAL PROPHYLAXIS
     Dosage: 300 MILLIGRAM
     Route: 055
     Dates: start: 20210321
  20. ALUMINIUM?MAGNESIUM HYDROXIDE [Concomitant]
     Indication: DYSPEPSIA
     Route: 048
     Dates: start: 20210325, end: 20210325
  21. VANCOMYCIN [Concomitant]
     Active Substance: VANCOMYCIN
     Dosage: 2250 MILLIGRAM
     Route: 041
     Dates: start: 20210326, end: 20210327
  22. LORAZEPAM. [Concomitant]
     Active Substance: LORAZEPAM
     Indication: NAUSEA
     Dosage: 1.5 MILLIGRAM
     Route: 041
     Dates: start: 20210325, end: 20210402
  23. SODIUM PHOSPHATE [Concomitant]
     Active Substance: SODIUM PHOSPHATE
     Indication: PRODUCT USED FOR UNKNOWN INDICATION
     Route: 041
     Dates: start: 20210325, end: 20210326
  24. DEXAMETHASONE. [Suspect]
     Active Substance: DEXAMETHASONE
     Route: 048
     Dates: start: 20200930
  25. DEXAMETHASONE. [Suspect]
     Active Substance: DEXAMETHASONE
     Route: 065
     Dates: start: 20201021, end: 20210113
  26. MOMETASONE FORMOTEROL [Concomitant]
     Indication: ASTHMA
     Dosage: 200?5 MCG
     Route: 055
     Dates: start: 202007
  27. BUPROPION. [Concomitant]
     Active Substance: BUPROPION
     Indication: DEPRESSION
     Dosage: 300 MILLIGRAM
     Route: 048
     Dates: start: 20161107
  28. ENOXAPARIN [Concomitant]
     Active Substance: ENOXAPARIN
     Indication: THROMBOSIS PROPHYLAXIS
     Dosage: 40 MILLIGRAM
     Route: 058
     Dates: start: 20210321, end: 20210404
  29. DIPHENOXYLATE ATROPINE [Concomitant]
     Indication: DIARRHOEA
     Dosage: 25?0.025 MG
     Route: 048
     Dates: start: 20210325, end: 20210325
  30. MEPERIDINE [Concomitant]
     Active Substance: MEPERIDINE
     Indication: PAIN
     Dosage: 100 MILLIGRAM
     Route: 041
     Dates: start: 20210323, end: 20210324
  31. VANCOMYCIN [Concomitant]
     Active Substance: VANCOMYCIN
     Dosage: 1 GRAM
     Route: 041
     Dates: start: 20210323, end: 20210325
  32. AZTREONAM. [Concomitant]
     Active Substance: AZTREONAM
     Indication: CYTOKINE RELEASE SYNDROME
  33. IPRATROPIUM?ALBUTEROL [Concomitant]
     Active Substance: ALBUTEROL\IPRATROPIUM
     Indication: HYPOXIA
  34. BENZONATATE. [Concomitant]
     Active Substance: BENZONATATE
     Indication: HYPOXIA
  35. DEXAMETHASONE. [Suspect]
     Active Substance: DEXAMETHASONE
     Indication: PLASMA CELL MYELOMA
     Route: 065
     Dates: start: 201603, end: 201606
  36. DEXAMETHASONE. [Suspect]
     Active Substance: DEXAMETHASONE
     Route: 048
     Dates: start: 20201021, end: 20210113
  37. FLUCONAZOLE. [Concomitant]
     Active Substance: FLUCONAZOLE
     Indication: INFECTION PROPHYLAXIS
     Dosage: 400 MILLIGRAM
     Route: 048
     Dates: start: 20210322, end: 20210327
  38. LORAZEPAM. [Concomitant]
     Active Substance: LORAZEPAM
     Indication: VOMITING
  39. BENZONATATE. [Concomitant]
     Active Substance: BENZONATATE
     Indication: DYSPNOEA
     Dosage: 300 MILLIGRAM
     Route: 048
     Dates: start: 20210326, end: 20210327
  40. CYCLOPHOSPHAMIDE. [Suspect]
     Active Substance: CYCLOPHOSPHAMIDE
     Indication: PLASMA CELL MYELOMA
     Dosage: 498 MILLIGRAM
     Route: 041
     Dates: start: 20210317, end: 20210319
  41. IPRATROPIUM?ALBUTEROL [Concomitant]
     Active Substance: ALBUTEROL\IPRATROPIUM
     Indication: DYSPNOEA
     Dosage: 18 MILLILITER
     Route: 055
     Dates: start: 20210326, end: 20210327
  42. ELOTUZUMAB. [Suspect]
     Active Substance: ELOTUZUMAB
     Indication: PLASMA CELL MYELOMA
     Dosage: 10 MILLIGRAM/KILOGRAM
     Route: 041
     Dates: start: 20200930
  43. DEXAMETHASONE. [Suspect]
     Active Substance: DEXAMETHASONE
     Route: 065
     Dates: start: 20200930
  44. POTASSIUM CHLORIDE. [Concomitant]
     Active Substance: POTASSIUM CHLORIDE
     Route: 041
     Dates: start: 20210325, end: 20210325
  45. TOCILIZUMAB. [Concomitant]
     Active Substance: TOCILIZUMAB
     Indication: CYTOKINE RELEASE SYNDROME
     Dosage: 489.6 MILLIGRAM
     Route: 041
     Dates: start: 20210324, end: 20210324
  46. FUROSEMIDE. [Concomitant]
     Active Substance: FUROSEMIDE
     Indication: WEIGHT INCREASED
     Route: 041
     Dates: start: 20210328, end: 20210328
  47. PANTOPRAZOLE [Concomitant]
     Active Substance: PANTOPRAZOLE
     Indication: GASTROOESOPHAGEAL REFLUX DISEASE
     Route: 041
     Dates: start: 20210403, end: 20210403
  48. POMALIDOMIDE [Suspect]
     Active Substance: POMALIDOMIDE
     Indication: PLASMA CELL MYELOMA
     Dosage: 4 MILLIGRAM
     Route: 048
     Dates: start: 20200930, end: 20210119
  49. ELOTUZUMAB. [Suspect]
     Active Substance: ELOTUZUMAB
     Dosage: 20 MILLIGRAM/KILOGRAM
     Route: 041
     Dates: start: 20201021, end: 20210113
  50. DEXAMETHASONE. [Suspect]
     Active Substance: DEXAMETHASONE
     Route: 041
     Dates: start: 20200930
  51. DEXAMETHASONE. [Suspect]
     Active Substance: DEXAMETHASONE
     Route: 041
     Dates: start: 20201021, end: 20210113
  52. ZOLEDRONIC ACID [Concomitant]
     Active Substance: ZOLEDRONIC ACID
     Indication: BONE PAIN
     Dosage: 4 MILLIGRAM
     Route: 041
     Dates: start: 20201026
  53. LOPERAMIDE [Concomitant]
     Active Substance: LOPERAMIDE
     Indication: DIARRHOEA
     Route: 048
     Dates: start: 20210324, end: 20210324
  54. TOCILIZUMAB. [Concomitant]
     Active Substance: TOCILIZUMAB
     Dosage: 489.6 MILLIGRAM
     Route: 041
     Dates: start: 20210326, end: 20210326
  55. FLUTICASONE VILANTEROL [Concomitant]
     Indication: ASTHMA
     Dosage: 200?25 MCG
     Route: 055
     Dates: start: 20210322, end: 20210329
  56. CALCIUM CARBONATE. [Concomitant]
     Active Substance: CALCIUM CARBONATE
     Indication: HYPOCALCAEMIA
     Dosage: 250?125 MG
     Route: 048
     Dates: start: 20210322, end: 20210405
  57. ACETYLCYSTEINE. [Concomitant]
     Active Substance: ACETYLCYSTEINE
     Indication: DYSPNOEA
     Dosage: 2400 MILLIGRAM
     Route: 055
     Dates: start: 20210326, end: 20210327
  58. LIDOCAINE. [Concomitant]
     Active Substance: LIDOCAINE
     Indication: ARTHRALGIA
     Dosage: 1 PATCH
     Route: 062
     Dates: start: 20210331, end: 20210402
  59. FLUDARABINE [Suspect]
     Active Substance: FLUDARABINE PHOSPHATE
     Indication: PLASMA CELL MYELOMA
     Dosage: 49.8 MILLIGRAM
     Route: 041
     Dates: start: 20210317, end: 20210319
  60. DEXAMETHASONE. [Suspect]
     Active Substance: DEXAMETHASONE
     Route: 065
     Dates: start: 201907, end: 20200928
  61. DEXAMETHASONE. [Suspect]
     Active Substance: DEXAMETHASONE
     Dosage: 28 MILLIGRAM
     Route: 065
     Dates: start: 20210212, end: 20210301
  62. HYDROCODONE [Concomitant]
     Active Substance: HYDROCODONE
     Indication: PAIN
     Dosage: 7.5?325 MG
     Route: 048
     Dates: start: 20200731
  63. ALBUTEROL. [Concomitant]
     Active Substance: ALBUTEROL
     Indication: ASTHMA
     Route: 055
     Dates: start: 201604
  64. ONDANSETRON [Concomitant]
     Active Substance: ONDANSETRON
     Indication: PROPHYLAXIS OF NAUSEA AND VOMITING
     Route: 041
     Dates: start: 20210322, end: 20210325
  65. ACETAMINOPHEN. [Concomitant]
     Active Substance: ACETAMINOPHEN
     Indication: PYREXIA
     Route: 048
     Dates: start: 20210323, end: 20210324
  66. PROCHLORPERAZINE. [Concomitant]
     Active Substance: PROCHLORPERAZINE
     Indication: NAUSEA
     Route: 041
     Dates: start: 20210323, end: 20210404
  67. MAGNESIUM SULFATE. [Concomitant]
     Active Substance: MAGNESIUM SULFATE
     Indication: PRODUCT USED FOR UNKNOWN INDICATION
     Dosage: 2 GRAM
     Route: 041
     Dates: start: 20210324, end: 20210324
  68. LORAZEPAM. [Concomitant]
     Active Substance: LORAZEPAM
     Indication: INSOMNIA
  69. LEVOFLOXACIN. [Concomitant]
     Active Substance: LEVOFLOXACIN
     Indication: INFECTION PROPHYLAXIS
     Dosage: 500 MILLIGRAM
     Route: 048
     Dates: start: 20210405

REACTIONS (1)
  - Gastroenteritis norovirus [Recovered/Resolved]

NARRATIVE: CASE EVENT DATE: 20210422
